FAERS Safety Report 16263382 (Version 1)
Quarter: 2019Q2

REPORT INFORMATION
  Report Type: Report from Study
  Country: IT (occurrence: IT)
  Receive Date: 20190502
  Receipt Date: 20190502
  Transmission Date: 20190711
  Serious: Yes (Life-Threatening)
  Sender: FDA-Public Use
  Company Number: IT-TEVA-2019-IT-1045363

PATIENT
  Age: 75 Year
  Sex: Female

DRUGS (10)
  1. ARCOXIA [Concomitant]
     Active Substance: ETORICOXIB
  2. ROSUVASTATIN CALCIUM. [Concomitant]
     Active Substance: ROSUVASTATIN CALCIUM
  3. IGROTON 25 MG COMPRESSE [Suspect]
     Active Substance: CHLORTHALIDONE
     Indication: HYPERTENSION
     Route: 048
  4. ETIZOLAM [Concomitant]
     Active Substance: ETIZOLAM
  5. LOSARTAN. [Suspect]
     Active Substance: LOSARTAN
     Indication: HYPERTENSION
     Route: 048
  6. GANFORT 0.3 MG/ML + 5 MG/ML EYE DROPS, SOLUTION [Concomitant]
     Dosage: FORM STRENGTH:0.3MG/ML+5MG/ML
  7. ACETYLSALICYLIC ACID [Concomitant]
     Active Substance: ASPIRIN
  8. METFORMIN [Concomitant]
     Active Substance: METFORMIN HYDROCHLORIDE
  9. ESOMEPRAZOLE SODIUM. [Concomitant]
     Active Substance: ESOMEPRAZOLE SODIUM
  10. DIOSMIN [Concomitant]
     Active Substance: DIOSMIN

REACTIONS (3)
  - Syncope [Recovering/Resolving]
  - Bradycardia [Recovering/Resolving]
  - Hypotension [Recovering/Resolving]

NARRATIVE: CASE EVENT DATE: 20190307
